FAERS Safety Report 6255938-X (Version None)
Quarter: 2009Q3

REPORT INFORMATION
  Report Type: 
  Country: None (occurrence: None)
  Receive Date: 20090706
  Receipt Date: 20090626
  Transmission Date: 20100115
  Serious: Yes (Other)
  Sender: FDA-Public Use
  Company Number: GB-RANBAXY-2009RR-25363

PATIENT
  Age: 56 Year
  Sex: Male

DRUGS (7)
  1. SIMVASTATIN [Suspect]
     Dosage: 10 MG, QD
     Route: 048
     Dates: start: 20071207, end: 20080201
  2. PRAVASTATIN [Suspect]
     Dosage: 10 MG, QD
     Route: 048
     Dates: start: 20080201, end: 20080305
  3. EZETIMIBE [Suspect]
     Dosage: 10 MG, QD
     Route: 048
     Dates: start: 20080305, end: 20090107
  4. VIAGRA [Suspect]
     Indication: ERECTILE DYSFUNCTION
     Dosage: 100 MG, UNK
     Route: 048
     Dates: start: 20010307
  5. ASPIRIN [Concomitant]
     Indication: CARDIOVASCULAR EVENT PROPHYLAXIS
     Dosage: 75 MG, UNK
     Route: 065
     Dates: start: 20080118
  6. SIMVASTATIN [Concomitant]
     Dosage: 75 MG, QD
     Dates: start: 20080118
  7. TROSPIUM CHLORIDE [Concomitant]
     Indication: URINARY TRACT DISORDER
     Dosage: 20 MG, BID
     Route: 065
     Dates: start: 20010307

REACTIONS (3)
  - BLOOD PRESSURE ABNORMAL [None]
  - DRUG INEFFECTIVE [None]
  - DRUG INTERACTION [None]
